FAERS Safety Report 12501240 (Version 7)
Quarter: 2016Q3

REPORT INFORMATION
  Report Type: Spontaneous
  Country: US (occurrence: US)
  Receive Date: 20160627
  Receipt Date: 20160729
  Transmission Date: 20161109
  Serious: Yes (Hospitalization, Other)
  Sender: FDA-Public Use
  Company Number: US-ELI_LILLY_AND_COMPANY-US201606000739

PATIENT
  Age: 57 Year
  Sex: Female
  Weight: 67.98 kg

DRUGS (8)
  1. ADCIRCA [Suspect]
     Active Substance: TADALAFIL
     Dosage: UNK, UNKNOWN
     Route: 065
  2. LETAIRIS [Suspect]
     Active Substance: AMBRISENTAN
     Dosage: UNK, UNKNOWN
     Route: 065
  3. TYVASO [Suspect]
     Active Substance: TREPROSTINIL
     Dosage: 3-9 BREATHS, QID
     Route: 055
  4. ADCIRCA [Suspect]
     Active Substance: TADALAFIL
     Indication: PRODUCT USED FOR UNKNOWN INDICATION
     Dosage: UNK UNK, UNKNOWN
     Route: 065
     Dates: start: 201605
  5. TYVASO [Suspect]
     Active Substance: TREPROSTINIL
     Indication: PULMONARY ARTERIAL HYPERTENSION
     Dosage: 3-9 BREATHS (18 TO 54 UG)
     Route: 055
     Dates: start: 20160512
  6. TYVASO [Suspect]
     Active Substance: TREPROSTINIL
     Dosage: 3-9 BREATHS, QID
     Route: 055
  7. LETAIRIS [Suspect]
     Active Substance: AMBRISENTAN
     Dosage: 5 MG, QD
     Route: 065
  8. LETAIRIS [Suspect]
     Active Substance: AMBRISENTAN
     Indication: PULMONARY HYPERTENSION
     Dosage: 5 MG, QD
     Route: 065
     Dates: start: 201605

REACTIONS (16)
  - Facial paralysis [Unknown]
  - Memory impairment [Unknown]
  - Hypotension [Not Recovered/Not Resolved]
  - Cerebrovascular accident [Unknown]
  - Dysarthria [Unknown]
  - Drug prescribing error [Unknown]
  - Disorientation [Unknown]
  - Posture abnormal [Unknown]
  - Fatigue [Unknown]
  - Headache [Not Recovered/Not Resolved]
  - Urinary tract infection [Unknown]
  - Confusional state [Unknown]
  - Hallucination [Unknown]
  - Migraine [Unknown]
  - Joint swelling [Unknown]
  - Dizziness [Unknown]

NARRATIVE: CASE EVENT DATE: 201605
